FAERS Safety Report 8893495 (Version 1)
Quarter: 2012Q4

REPORT INFORMATION
  Report Type: 
  Country: GB (occurrence: GB)
  Receive Date: 20121108
  Receipt Date: 20121108
  Transmission Date: 20130627
  Serious: Yes (Hospitalization, Other)
  Sender: FDA-Public Use
  Company Number: GB-JNJFOC-20121100535

PATIENT
  Age: 64 Year
  Sex: Male
  Weight: 69 kg

DRUGS (21)
  1. PALEXIA SR [Suspect]
     Indication: BACK PAIN
     Route: 048
     Dates: start: 20110726
  2. ASPIRIN [Concomitant]
     Route: 048
     Dates: start: 20061114
  3. DOMPERIDONE [Concomitant]
     Route: 048
     Dates: start: 20111128
  4. PARACETAMOL [Concomitant]
     Indication: PRODUCT USED FOR UNKNOWN INDICATION
     Route: 048
  5. SIMVASTATIN [Concomitant]
     Route: 048
     Dates: start: 20080226
  6. TESTOSTERONE [Concomitant]
     Route: 065
     Dates: start: 20080603
  7. LOPRAZOLAM [Concomitant]
     Route: 048
  8. MORPHINE SULPHATE [Concomitant]
     Route: 048
     Dates: start: 20100406
  9. NYSTAFORM CREAM [Concomitant]
     Route: 061
     Dates: start: 20080514
  10. GUAIFENESIN [Concomitant]
     Indication: PRODUCT USED FOR UNKNOWN INDICATION
     Dates: start: 20090615
  11. SALBUTAMOL [Concomitant]
     Route: 065
     Dates: start: 20070306
  12. ISOSORBIDE MONONITRATE [Concomitant]
     Route: 048
     Dates: start: 20110915
  13. NICORANDIL [Concomitant]
     Route: 048
     Dates: start: 20111031
  14. DEPO MEDROL [Concomitant]
     Route: 065
     Dates: start: 20120606
  15. ASCORBIC ACID [Concomitant]
     Route: 048
     Dates: start: 20061114
  16. ALFUZOSIN [Concomitant]
     Route: 048
  17. BETAHISTINE [Concomitant]
     Route: 048
     Dates: start: 20100208
  18. DILTIAZEM [Concomitant]
     Route: 048
     Dates: start: 20081125
  19. SENNA [Concomitant]
     Route: 048
     Dates: start: 20110222
  20. LANSOPRAZOLE [Concomitant]
     Route: 048
  21. IRBESARTAN [Concomitant]
     Route: 048

REACTIONS (5)
  - Asthma [Unknown]
  - Pain in extremity [Unknown]
  - Cluster headache [Unknown]
  - Dyspnoea [Unknown]
  - Chest pain [Unknown]
